FAERS Safety Report 19115168 (Version 3)
Quarter: 2025Q1

REPORT INFORMATION
  Report Type: Report from Study
  Country: US (occurrence: US)
  Receive Date: 20210409
  Receipt Date: 20250123
  Transmission Date: 20250409
  Serious: Yes (Hospitalization, Other)
  Sender: ROCHE
  Company Number: US-ROCHE-2805281

PATIENT
  Age: 63 Year
  Sex: Female
  Weight: 154.22 kg

DRUGS (36)
  1. RITUXAN [Suspect]
     Active Substance: RITUXIMAB
     Indication: Granulomatosis with polyangiitis
     Route: 042
     Dates: start: 201010
  2. CELLCEPT [Suspect]
     Active Substance: MYCOPHENOLATE MOFETIL
     Indication: Product used for unknown indication
     Route: 065
  3. BACTRIM [Concomitant]
     Active Substance: SULFAMETHOXAZOLE\TRIMETHOPRIM
     Indication: Granulomatosis with polyangiitis
     Dates: start: 2007
  4. BACTRIM [Concomitant]
     Active Substance: SULFAMETHOXAZOLE\TRIMETHOPRIM
  5. OXYCODONE [Concomitant]
     Active Substance: OXYCODONE
  6. IMURAN [Concomitant]
     Active Substance: AZATHIOPRINE
     Indication: Granulomatosis with polyangiitis
  7. IMURAN [Concomitant]
     Active Substance: AZATHIOPRINE
     Indication: Granulomatosis with polyangiitis
     Dates: start: 2012
  8. ROXICODONE [Concomitant]
     Active Substance: OXYCODONE HYDROCHLORIDE
  9. METHOTREXATE [Concomitant]
     Active Substance: METHOTREXATE
     Indication: Granulomatosis with polyangiitis
  10. LOSARTAN [Concomitant]
     Active Substance: LOSARTAN
     Indication: Hypertension
  11. EFFEXOR [Concomitant]
     Active Substance: VENLAFAXINE HYDROCHLORIDE
     Indication: Migraine
     Dates: start: 2007
  12. EFFEXOR [Concomitant]
     Active Substance: VENLAFAXINE HYDROCHLORIDE
  13. AMBIEN [Concomitant]
     Active Substance: ZOLPIDEM TARTRATE
     Indication: Insomnia
     Dates: start: 2007
  14. HUMALOG [Concomitant]
     Active Substance: INSULIN LISPRO
     Indication: Type 2 diabetes mellitus
     Dates: start: 201112, end: 2017
  15. METFORMIN [Concomitant]
     Active Substance: METFORMIN HYDROCHLORIDE
     Indication: Type 2 diabetes mellitus
     Dates: start: 201112
  16. FOLIC ACID [Concomitant]
     Active Substance: FOLIC ACID
     Indication: Granulomatosis with polyangiitis
     Dates: start: 201103
  17. FOLIC ACID [Concomitant]
     Active Substance: FOLIC ACID
  18. LISINOPRIL [Concomitant]
     Active Substance: LISINOPRIL
     Indication: Hypertension
     Dates: start: 2012
  19. POTASSIUM [Concomitant]
     Active Substance: POTASSIUM
     Indication: Hypokalaemia
     Dates: start: 2002
  20. POTASSIUM [Concomitant]
     Active Substance: POTASSIUM
  21. MAGNESIUM [Concomitant]
     Active Substance: MAGNESIUM
     Indication: Blood magnesium decreased
     Dates: start: 2002
  22. CALCIUM [Concomitant]
     Active Substance: CALCIUM
     Dates: start: 202101
  23. ALENDRONATE [Concomitant]
     Active Substance: ALENDRONATE SODIUM
     Dates: start: 202101
  24. TIROSINT [Concomitant]
     Active Substance: LEVOTHYROXINE SODIUM
     Dates: start: 2019
  25. VALTREX [Concomitant]
     Active Substance: VALACYCLOVIR HYDROCHLORIDE
     Indication: Herpes zoster
     Route: 048
     Dates: start: 20110705
  26. DEXILANT [Concomitant]
     Active Substance: DEXLANSOPRAZOLE
     Indication: Gastrooesophageal reflux disease
     Dates: start: 2017
  27. CYCLOBENZAPRINE [Concomitant]
     Active Substance: CYCLOBENZAPRINE
     Indication: Myalgia
     Dates: start: 202007
  28. SYMBICORT [Concomitant]
     Active Substance: BUDESONIDE\FORMOTEROL FUMARATE DIHYDRATE
     Dates: start: 2011
  29. PROAIR HFA [Concomitant]
     Active Substance: ALBUTEROL SULFATE
     Route: 055
  30. CIPROFLOXACIN [Concomitant]
     Active Substance: CIPROFLOXACIN
     Indication: Ear tube insertion
     Dates: start: 200612
  31. DEXAMETHASONE [Concomitant]
     Active Substance: DEXAMETHASONE
  32. DICLOFENAC [Concomitant]
     Active Substance: DICLOFENAC
     Indication: Pain
     Dates: start: 2016
  33. SAXENDA [Concomitant]
     Active Substance: LIRAGLUTIDE
     Indication: Weight decreased
     Dates: start: 202012
  34. LANTUS [Concomitant]
     Active Substance: INSULIN GLARGINE
     Indication: Type 2 diabetes mellitus
     Dates: start: 201112, end: 2017
  35. METOPROLOL [Concomitant]
     Active Substance: METOPROLOL
     Route: 048
  36. METOPROLOL [Concomitant]
     Active Substance: METOPROLOL
     Indication: Hypertension
     Route: 048

REACTIONS (24)
  - Pain [Unknown]
  - Fatigue [Unknown]
  - Pulmonary haemorrhage [Unknown]
  - Off label use [Unknown]
  - Femur fracture [Recovered/Resolved]
  - Hip fracture [Unknown]
  - Osteoporosis [Unknown]
  - Epistaxis [Not Recovered/Not Resolved]
  - Atrial fibrillation [Unknown]
  - Blood cholesterol increased [Unknown]
  - Cough [Unknown]
  - Calciphylaxis [Not Recovered/Not Resolved]
  - Myalgia [Unknown]
  - Benign neoplasm of thyroid gland [Recovered/Resolved]
  - Heart valve incompetence [Recovering/Resolving]
  - Cardiac murmur [Recovered/Resolved]
  - Pneumonia [Unknown]
  - Off label use [Unknown]
  - Biopsy skin [Recovered/Resolved]
  - Drug hypersensitivity [Not Recovered/Not Resolved]
  - Infusion related reaction [Recovered/Resolved]
  - Limb injury [Recovered/Resolved]
  - Calcinosis [Not Recovered/Not Resolved]
  - Dyspnoea [Recovered/Resolved]

NARRATIVE: CASE EVENT DATE: 20101001
